FAERS Safety Report 10227911 (Version 2)
Quarter: 2014Q2

REPORT INFORMATION
  Report Type: Spontaneous
  Country: GB (occurrence: GB)
  Receive Date: 20140610
  Receipt Date: 20140610
  Transmission Date: 20141212
  Serious: Yes (Hospitalization)
  Sender: FDA-Public Use
  Company Number: GB-ASTRAZENECA-2014SE30101

PATIENT
  Sex: Female

DRUGS (1)
  1. ENTOCORT [Suspect]
     Route: 048

REACTIONS (4)
  - Feeling abnormal [Unknown]
  - General physical health deterioration [Unknown]
  - Adverse event [Unknown]
  - Intentional product misuse [Unknown]
